FAERS Safety Report 7304411-6 (Version None)
Quarter: 2011Q1

REPORT INFORMATION
  Report Type: 
  Country: None (occurrence: None)
  Receive Date: 20110221
  Receipt Date: 20110215
  Transmission Date: 20110831
  Serious: Yes (Hospitalization, Other)
  Sender: FDA-Public Use
  Company Number: US-AMGEN-USASP2011008589

PATIENT
  Sex: Male

DRUGS (1)
  1. NPLATE [Suspect]
     Indication: IDIOPATHIC THROMBOCYTOPENIC PURPURA
     Dosage: 90 A?G, UNK
     Dates: start: 20110119

REACTIONS (3)
  - ACUTE MYELOID LEUKAEMIA [None]
  - MYOCARDIAL INFARCTION [None]
  - DRUG INEFFECTIVE [None]
